FAERS Safety Report 8627976 (Version 7)
Quarter: 2014Q2

REPORT INFORMATION
  Report Type: Spontaneous
  Country: US (occurrence: US)
  Receive Date: 20120621
  Receipt Date: 20140509
  Transmission Date: 20141212
  Serious: Yes (Death, Hospitalization, Other)
  Sender: FDA-Public Use
  Company Number: US-ASTRAZENECA-2012SE39462

PATIENT
  Age: 58 Year
  Sex: Male

DRUGS (12)
  1. NEXIUM [Suspect]
     Indication: DYSPEPSIA
     Route: 048
     Dates: start: 2004, end: 2010
  2. NEXIUM [Suspect]
     Indication: GASTROOESOPHAGEAL REFLUX DISEASE
     Route: 048
     Dates: start: 2004, end: 2010
  3. NEXIUM [Suspect]
     Indication: OESOPHAGEAL ULCER
     Route: 048
     Dates: start: 2004, end: 2010
  4. NEXIUM [Suspect]
     Indication: OESOPHAGITIS
     Route: 048
     Dates: start: 2004, end: 2010
  5. NEXIUM [Suspect]
     Indication: OFF LABEL USE
     Route: 048
     Dates: start: 2004, end: 2010
  6. RYTHMOL [Concomitant]
     Route: 048
     Dates: start: 20110405
  7. LORATADINE [Concomitant]
     Route: 048
     Dates: start: 20110405
  8. FAMOTIDINE [Concomitant]
     Route: 048
     Dates: start: 20110405
  9. CYCLOBENZAPR [Concomitant]
     Dosage: TAKE AS DIRECTED
     Route: 048
     Dates: start: 20110405
  10. METOPROLOL ER/TOPOROL [Concomitant]
     Route: 048
     Dates: start: 20110718
  11. ASA [Concomitant]
  12. MULTI VIT [Concomitant]

REACTIONS (13)
  - Death [Fatal]
  - Hip fracture [Unknown]
  - Acetabulum fracture [Unknown]
  - Atrial fibrillation [Unknown]
  - Cytomegalovirus infection [Unknown]
  - Muscle strain [Unknown]
  - Osteoarthritis [Unknown]
  - Arthritis [Unknown]
  - Muscle atrophy [Unknown]
  - Calcium deficiency [Unknown]
  - Liver disorder [Unknown]
  - Androgen deficiency [Unknown]
  - Rib fracture [Unknown]
